FAERS Safety Report 8205037-2 (Version None)
Quarter: 2012Q1

REPORT INFORMATION
  Report Type: 
  Country: None (occurrence: None)
  Receive Date: 20120313
  Receipt Date: 20120229
  Transmission Date: 20120608
  Serious: No
  Sender: FDA-Public Use
  Company Number: US-B.I. PHARMACEUTICALS,INC./RIDGEFIELD-2012-BP-03837BP

PATIENT
  Age: 77 Year
  Sex: Male

DRUGS (5)
  1. AMINEX [Concomitant]
     Indication: SLEEP DISORDER
  2. ZANTAC [Concomitant]
     Indication: DYSPEPSIA
  3. FUROSEMIDE [Concomitant]
     Indication: DIURETIC THERAPY
  4. PRADAXA [Suspect]
     Dosage: 300 MG
     Route: 048
     Dates: start: 20110601
  5. METOPROLOL SUCCINATE [Concomitant]

REACTIONS (4)
  - DYSPEPSIA [None]
  - HAEMOGLOBIN ABNORMAL [None]
  - POLYCYTHAEMIA VERA [None]
  - HAEMATOCRIT ABNORMAL [None]
